FAERS Safety Report 4363295-9 (Version None)
Quarter: 2004Q2

REPORT INFORMATION
  Report Type: 
  Country: None (occurrence: None)
  Receive Date: 20040519
  Receipt Date: 20040510
  Transmission Date: 20050107
  Serious: Yes (Other)
  Sender: FDA-Public Use
  Company Number: 2004-05-0480

PATIENT
  Age: 58 Year
  Sex: Female

DRUGS (1)
  1. NASONEX [Suspect]
     Indication: RHINITIS ALLERGIC
     Dosage: ONE SPRAY QD NASAL SPRAY
     Route: 045
     Dates: start: 20040218, end: 20040422

REACTIONS (15)
  - BURNING SENSATION [None]
  - CANDIDIASIS [None]
  - EAR PAIN [None]
  - FACE OEDEMA [None]
  - HEADACHE [None]
  - HYPOAESTHESIA [None]
  - MUSCLE CRAMP [None]
  - MYALGIA [None]
  - NAUSEA [None]
  - PARAESTHESIA ORAL [None]
  - PHARYNGITIS [None]
  - PHARYNGOLARYNGEAL PAIN [None]
  - SWELLING FACE [None]
  - VIRAL INFECTION [None]
  - WEIGHT DECREASED [None]
